FAERS Safety Report 18712998 (Version 2)
Quarter: 2021Q1

REPORT INFORMATION
  Report Type: Report from Study
  Country: NL (occurrence: NL)
  Receive Date: 20210107
  Receipt Date: 20210115
  Transmission Date: 20210419
  Serious: Yes (Life-Threatening, Disabling, Other)
  Sender: FDA-Public Use
  Company Number: NL-PFIZER INC-2021005930

PATIENT
  Age: 63 Year
  Sex: Female

DRUGS (2)
  1. OXALIPLATIN. [Suspect]
     Active Substance: OXALIPLATIN
     Indication: COLON CANCER
     Dosage: 130 MG/M2, CYCLIC
     Route: 041
  2. CAPECITABINE. [Suspect]
     Active Substance: CAPECITABINE
     Indication: COLON CANCER
     Dosage: UNK, CYCLIC (INFUSION)
     Route: 041

REACTIONS (4)
  - Neuropathy peripheral [Recovered/Resolved]
  - Loss of personal independence in daily activities [Unknown]
  - Neurotoxicity [Recovered/Resolved]
  - Impaired quality of life [Unknown]
